FAERS Safety Report 12186646 (Version 1)
Quarter: 2016Q1

REPORT INFORMATION
  Report Type: Spontaneous
  Country: US (occurrence: None)
  Receive Date: 20160316
  Receipt Date: 20160316
  Transmission Date: 20160526
  Serious: Yes (Hospitalization)
  Sender: FDA-Public Use
  Company Number: None

PATIENT
  Age: 75 Year
  Sex: Male
  Weight: 51.94 kg

DRUGS (2)
  1. ASPIRIN. [Suspect]
     Active Substance: ASPIRIN
     Indication: DIABETES MELLITUS
     Route: 048
     Dates: start: 20140312, end: 20151216
  2. ASPIRIN. [Suspect]
     Active Substance: ASPIRIN
     Indication: ATRIAL FIBRILLATION
     Route: 048
     Dates: start: 20140312, end: 20151216

REACTIONS (2)
  - Subdural haematoma [None]
  - Fall [None]

NARRATIVE: CASE EVENT DATE: 20151216
